FAERS Safety Report 6329420-5 (Version None)
Quarter: 2009Q3

REPORT INFORMATION
  Report Type: 
  Country: None (occurrence: None)
  Receive Date: 20090826
  Receipt Date: 20090818
  Transmission Date: 20100115
  Serious: Yes (Other)
  Sender: FDA-Public Use
  Company Number: A0804046A

PATIENT
  Sex: Female

DRUGS (11)
  1. REQUIP [Suspect]
     Indication: RESTLESS LEGS SYNDROME
     Route: 065
  2. LISINOPRIL [Suspect]
     Indication: DRUG USE FOR UNKNOWN INDICATION
     Route: 065
  3. LIPITOR [Concomitant]
  4. PLAVIX [Concomitant]
  5. ZOCOR [Concomitant]
  6. TOPROL-XL [Concomitant]
  7. ASPIRIN [Concomitant]
  8. NEXIUM [Concomitant]
  9. CYMBALTA [Concomitant]
  10. KLONOPIN [Concomitant]
     Indication: MYOCLONUS
  11. BONIVA [Concomitant]

REACTIONS (6)
  - CARDIAC DISORDER [None]
  - COUGH [None]
  - DRUG TOLERANCE [None]
  - POOR QUALITY SLEEP [None]
  - STENT PLACEMENT [None]
  - VOMITING [None]
